FAERS Safety Report 6198552-7 (Version None)
Quarter: 2009Q2

REPORT INFORMATION
  Report Type: 
  Country: None (occurrence: None)
  Receive Date: 20090521
  Receipt Date: 20090511
  Transmission Date: 20091009
  Serious: Yes (Other)
  Sender: FDA-Public Use
  Company Number: JP-PFIZER INC-2009215746

PATIENT
  Age: 44 Year

DRUGS (7)
  1. CELECOX [Suspect]
     Indication: RHEUMATOID ARTHRITIS
     Dosage: 400 MG, UNKNOWN/D
     Route: 048
     Dates: start: 20080707, end: 20080728
  2. LOXONIN [Concomitant]
     Dosage: UNK
     Dates: start: 20080728
  3. ANTITHROMBOTIC AGENTS [Concomitant]
  4. BISMUTH CAMPHOCARBONATE [Concomitant]
  5. ANTIARRHYTHMICS, CLASS I AND III [Concomitant]
  6. INDOMETACIN [Concomitant]
  7. CORTICOSTEROIDS [Concomitant]

REACTIONS (1)
  - THROMBOANGIITIS OBLITERANS [None]
